FAERS Safety Report 9732766 (Version 2)
Quarter: 2013Q4

REPORT INFORMATION
  Report Type: Spontaneous
  Country: CZ (occurrence: CZ)
  Receive Date: 20131204
  Receipt Date: 20131230
  Transmission Date: 20140711
  Serious: Yes (Death)
  Sender: FDA-Public Use
  Company Number: CZ-GLAXOSMITHKLINE-B0950131A

PATIENT
  Age: 78 Year
  Sex: Female

DRUGS (3)
  1. VOTRIENT [Suspect]
     Indication: RENAL CELL CARCINOMA
     Dosage: 600MG PER DAY
     Route: 065
     Dates: start: 20120412, end: 20130522
  2. PALLADONE [Concomitant]
  3. AROMASIN [Concomitant]

REACTIONS (3)
  - Renal cancer [Fatal]
  - Weight decreased [Recovered/Resolved]
  - Diarrhoea [Recovered/Resolved]
